FAERS Safety Report 11014001 (Version 2)
Quarter: 2015Q2

REPORT INFORMATION
  Report Type: Spontaneous
  Country: US (occurrence: US)
  Receive Date: 20150412
  Receipt Date: 20150525
  Transmission Date: 20150821
  Serious: No
  Sender: FDA-Public Use
  Company Number: US-JNJFOC-20140819311

PATIENT
  Sex: Female
  Weight: 71.03 kg

DRUGS (9)
  1. NAPROXEN. [Suspect]
     Active Substance: NAPROXEN
     Indication: PRODUCT USED FOR UNKNOWN INDICATION
     Route: 065
     Dates: start: 2014, end: 2014
  2. TRILEPTAL [Interacting]
     Active Substance: OXCARBAZEPINE
     Indication: SEIZURE
     Route: 048
  3. VITAMIN B2 [Concomitant]
     Active Substance: RIBOFLAVIN
     Indication: MIGRAINE
     Route: 048
  4. KEPPRA [Interacting]
     Active Substance: LEVETIRACETAM
     Indication: PRODUCT USED FOR UNKNOWN INDICATION
     Route: 065
  5. ELMIRON [Suspect]
     Active Substance: PENTOSAN POLYSULFATE SODIUM
     Indication: DYSURIA
     Route: 048
     Dates: end: 201402
  6. ELMIRON [Suspect]
     Active Substance: PENTOSAN POLYSULFATE SODIUM
     Indication: DYSURIA
     Route: 048
     Dates: start: 20140809
  7. TRILEPTAL [Interacting]
     Active Substance: OXCARBAZEPINE
     Indication: SEIZURE
     Route: 048
  8. ZOMIG [Concomitant]
     Active Substance: ZOLMITRIPTAN
     Indication: MIGRAINE
     Route: 048
  9. LANSOPRAZOLE. [Concomitant]
     Active Substance: LANSOPRAZOLE
     Indication: GASTROOESOPHAGEAL REFLUX DISEASE
     Route: 048

REACTIONS (11)
  - Balance disorder [Unknown]
  - Weight increased [Unknown]
  - Urethral injury [Not Recovered/Not Resolved]
  - Blood sodium abnormal [Unknown]
  - Adverse drug reaction [Unknown]
  - Drug interaction [Unknown]
  - Pollakiuria [Recovered/Resolved]
  - Adverse event [Unknown]
  - Feeling abnormal [Unknown]
  - Drug ineffective [Not Recovered/Not Resolved]
  - Malaise [Unknown]

NARRATIVE: CASE EVENT DATE: 2014
